FAERS Safety Report 5390830-4 (Version None)
Quarter: 2007Q3

REPORT INFORMATION
  Report Type: 
  Country: None (occurrence: None)
  Receive Date: 20070712
  Receipt Date: 20070514
  Transmission Date: 20080115
  Serious: Yes (Death)
  Sender: FDA-Public Use
  Company Number: 6033892

PATIENT

DRUGS (1)
  1. PAROXETINE HYDROCHLORIDE (PAROXETINE) [Suspect]
     Indication: DRUG USE FOR UNKNOWN INDICATION
     Dates: start: 20020101

REACTIONS (2)
  - ADVERSE EVENT [None]
  - COMPLETED SUICIDE [None]
